FAERS Safety Report 14561939 (Version 3)
Quarter: 2018Q1

REPORT INFORMATION
  Report Type: Spontaneous
  Country: US (occurrence: US)
  Receive Date: 20180222
  Receipt Date: 20180322
  Transmission Date: 20180509
  Serious: Yes (Hospitalization, Disabling)
  Sender: FDA-Public Use
  Company Number: US-JNJFOC-20180226461

PATIENT
  Age: 50 Year
  Sex: Male

DRUGS (3)
  1. INVOKANA [Suspect]
     Active Substance: CANAGLIFLOZIN
     Indication: PRODUCT USED FOR UNKNOWN INDICATION
     Route: 048
     Dates: start: 201509, end: 201510
  2. INVOKANA [Suspect]
     Active Substance: CANAGLIFLOZIN
     Indication: PRODUCT USED FOR UNKNOWN INDICATION
     Route: 048
     Dates: end: 201408
  3. INVOKANA [Suspect]
     Active Substance: CANAGLIFLOZIN
     Indication: PRODUCT USED FOR UNKNOWN INDICATION
     Route: 048
     Dates: end: 201508

REACTIONS (7)
  - Neuropathic arthropathy [Unknown]
  - Haematoma infection [Unknown]
  - Amputation [Unknown]
  - Cellulitis [Unknown]
  - Skin ulcer [Recovering/Resolving]
  - Diabetic foot infection [Unknown]
  - Leg amputation [Unknown]

NARRATIVE: CASE EVENT DATE: 201508
